FAERS Safety Report 9678440 (Version 2)
Quarter: 2013Q4

REPORT INFORMATION
  Report Type: Spontaneous
  Country: US (occurrence: US)
  Receive Date: 20131108
  Receipt Date: 20131114
  Transmission Date: 20140711
  Serious: No
  Sender: FDA-Public Use
  Company Number: US-009507513-1310USA013224

PATIENT
  Age: 70 Year
  Sex: Male

DRUGS (2)
  1. JANUMET [Suspect]
     Indication: DIABETES MELLITUS
     Dosage: 1 UNIT OF USE BOTTLE OF 60
     Route: 048
     Dates: start: 20121119
  2. COZAAR [Concomitant]
     Route: 048

REACTIONS (1)
  - Blood glucose increased [Not Recovered/Not Resolved]
